FAERS Safety Report 7360915-1 (Version None)
Quarter: 2011Q1

REPORT INFORMATION
  Report Type: 
  Country: None (occurrence: None)
  Receive Date: 20110318
  Receipt Date: 20110307
  Transmission Date: 20110831
  Serious: Yes (Other)
  Sender: FDA-Public Use
  Company Number: PHHY2011CA19513

PATIENT
  Sex: Female

DRUGS (1)
  1. ACLASTA [Suspect]
     Indication: OSTEOPOROSIS
     Dosage: UNK
     Dates: start: 20110217

REACTIONS (12)
  - VISUAL ACUITY REDUCED [None]
  - HEAD DISCOMFORT [None]
  - MALAISE [None]
  - NAUSEA [None]
  - BONE PAIN [None]
  - FALL [None]
  - VERTIGO [None]
  - PAIN [None]
  - PYREXIA [None]
  - PAIN OF SKIN [None]
  - CHILLS [None]
  - DIZZINESS [None]
